FAERS Safety Report 16172648 (Version 3)
Quarter: 2020Q2

REPORT INFORMATION
  Report Type: Spontaneous
  Country: CH (occurrence: CH)
  Receive Date: 20190409
  Receipt Date: 20200513
  Transmission Date: 20200713
  Serious: Yes (Death, Life-Threatening, Hospitalization, Other)
  Sender: FDA-Public Use
  Company Number: CH-BRISTOL-MYERS SQUIBB COMPANY-BMS-2019-035157

PATIENT
  Age: 65 Year
  Sex: Male

DRUGS (2)
  1. IPILIMUMAB [Suspect]
     Active Substance: IPILIMUMAB
     Indication: MALIGNANT MELANOMA
     Route: 065
  2. NIVOLUMAB [Suspect]
     Active Substance: NIVOLUMAB
     Indication: MALIGNANT MELANOMA
     Dosage: UNK
     Route: 065
     Dates: end: 2016

REACTIONS (3)
  - Pulmonary mycosis [Fatal]
  - Neutropenia [Recovered/Resolved]
  - Immune-mediated enterocolitis [Unknown]

NARRATIVE: CASE EVENT DATE: 2016
